FAERS Safety Report 16270712 (Version 1)
Quarter: 2019Q2

REPORT INFORMATION
  Report Type: Spontaneous
  Country: CN (occurrence: CN)
  Receive Date: 20190503
  Receipt Date: 20190503
  Transmission Date: 20190711
  Serious: Yes (Other)
  Sender: FDA-Public Use
  Company Number: CN-SA-2019SA121351

PATIENT
  Age: 69 Year
  Sex: Male
  Weight: 65 kg

DRUGS (3)
  1. XYZAL [Suspect]
     Active Substance: LEVOCETIRIZINE DIHYDROCHLORIDE
     Indication: PRODUCT USED FOR UNKNOWN INDICATION
     Dosage: UNK UNK, UNK
     Route: 048
  2. CALAMINE;CAMPHOR [Concomitant]
  3. DESLORATADINE. [Concomitant]
     Active Substance: DESLORATADINE

REACTIONS (2)
  - Seizure [Unknown]
  - Coma [Unknown]

NARRATIVE: CASE EVENT DATE: 20190416
